FAERS Safety Report 8093510-X (Version None)
Quarter: 2012Q1

REPORT INFORMATION
  Report Type: 
  Country: None (occurrence: None)
  Receive Date: 20120129
  Receipt Date: 20111016
  Transmission Date: 20120608
  Serious: No
  Sender: FDA-Public Use
  Company Number: US-ABBOTT-11P-163-0865626-00

PATIENT
  Age: 58 Year
  Sex: Female

DRUGS (2)
  1. VITAMIN TAB [Concomitant]
     Indication: PRODUCT USED FOR UNKNOWN INDICATION
  2. HUMIRA [Suspect]
     Indication: CROHN'S DISEASE

REACTIONS (7)
  - ERYTHEMA [None]
  - WOUND SECRETION [None]
  - BURNING SENSATION [None]
  - DERMATITIS CONTACT [None]
  - SWELLING FACE [None]
  - RASH [None]
  - LOCAL SWELLING [None]
